FAERS Safety Report 4554805-7 (Version None)
Quarter: 2005Q1

REPORT INFORMATION
  Report Type: 
  Country: None (occurrence: None)
  Receive Date: 20041227
  Receipt Date: 20040909
  Transmission Date: 20050727
  Serious: Yes (Hospitalization, Disabling)
  Sender: FDA-Public Use
  Company Number: 2003-05984

PATIENT
  Age: 62 Year
  Sex: Male
  Weight: 82 kg

DRUGS (17)
  1. VIREAD [Suspect]
     Indication: HIV INFECTION
     Dosage: 300 MG, 1 IN 1 D, ORAL
     Route: 048
     Dates: start: 20020819, end: 20030820
  2. ACYCLOVIR [Suspect]
  3. ZIAGEN [Concomitant]
  4. VIRAMUNE [Concomitant]
  5. AMBIEN [Concomitant]
  6. PRAVACHOL [Concomitant]
  7. DOXAZOSIN [Concomitant]
  8. PAXIL [Concomitant]
  9. AMITRIPTYLINE [Concomitant]
  10. PROTEGRA [Concomitant]
  11. TRICOR [Concomitant]
  12. NEURONTIN [Concomitant]
  13. VITAMIN C (ASCORBIC ACID) [Concomitant]
  14. VITAMIN E [Concomitant]
  15. LOTENSIN [Concomitant]
  16. NORVASC [Concomitant]
  17. OXYCONTIN [Concomitant]

REACTIONS (2)
  - RENAL FAILURE ACUTE [None]
  - RENAL FAILURE CHRONIC [None]
